FAERS Safety Report 5443155-2 (Version None)
Quarter: 2007Q3

REPORT INFORMATION
  Report Type: 
  Country: None (occurrence: None)
  Receive Date: 20070730
  Receipt Date: 20061207
  Transmission Date: 20080115
  Serious: Yes (Other)
  Sender: FDA-Public Use
  Company Number: 233588

PATIENT
  Age: 65 Year
  Sex: Female
  Weight: 81.6 kg

DRUGS (1)
  1. RITUXAN [Suspect]
     Indication: RHEUMATOID ARTHRITIS
     Dates: start: 20060605

REACTIONS (2)
  - LARYNGITIS [None]
  - SINUSITIS [None]
